FAERS Safety Report 6263665-8 (Version None)
Quarter: 2009Q3

REPORT INFORMATION
  Report Type: 
  Country: None (occurrence: None)
  Receive Date: 20090710
  Receipt Date: 20090702
  Transmission Date: 20100115
  Serious: Yes (Hospitalization, Other)
  Sender: FDA-Public Use
  Company Number: US-ELI_LILLY_AND_COMPANY-US200906005094

PATIENT
  Sex: Female

DRUGS (4)
  1. FORTEO [Suspect]
     Indication: OSTEOPOROSIS
  2. AMIODARONE HCL [Concomitant]
     Indication: SUPRAVENTRICULAR TACHYCARDIA
     Dosage: 200 MG, UNK
     Dates: start: 20070101
  3. LANOXIN [Concomitant]
     Indication: SUPRAVENTRICULAR TACHYCARDIA
     Dosage: 0.125 MG, UNK
     Dates: start: 20070101
  4. CARDIZEM [Concomitant]
     Indication: SUPRAVENTRICULAR TACHYCARDIA
     Dosage: 120 MG, UNK
     Dates: start: 20070101

REACTIONS (5)
  - ATRIAL FIBRILLATION [None]
  - FRUSTRATION [None]
  - INTESTINAL OBSTRUCTION [None]
  - SUPRAVENTRICULAR TACHYCARDIA [None]
  - VOMITING [None]
